FAERS Safety Report 9256749 (Version 2)
Quarter: 2014Q1

REPORT INFORMATION
  Report Type: Spontaneous
  Country: US (occurrence: US)
  Receive Date: 20130426
  Receipt Date: 20140107
  Transmission Date: 20141002
  Serious: Yes (Disabling)
  Sender: FDA-Public Use
  Company Number: US-ASTRAZENECA-2013SE27267

PATIENT
  Age: 52 Year
  Sex: Male

DRUGS (11)
  1. NEXIUM [Suspect]
     Indication: GASTROOESOPHAGEAL REFLUX DISEASE
     Dosage: DAILY
     Route: 048
  2. NEXIUM [Suspect]
     Indication: GASTROOESOPHAGEAL REFLUX DISEASE
     Route: 048
     Dates: start: 20040802
  3. PRILOSEC OTC [Suspect]
     Route: 048
  4. ZANTAC [Concomitant]
     Dates: start: 1980
  5. TAGAMET [Concomitant]
  6. HYDROCODONE [Concomitant]
     Indication: PAIN
  7. DIOVAN [Concomitant]
     Indication: CARDIAC DISORDER
  8. DIOVAN [Concomitant]
     Indication: BLOOD PRESSURE ABNORMAL
  9. TRAMADOL [Concomitant]
     Indication: PAIN
  10. ADDERAL [Concomitant]
     Indication: ATTENTION DEFICIT/HYPERACTIVITY DISORDER
  11. ZANAX [Concomitant]

REACTIONS (14)
  - Intervertebral disc disorder [Unknown]
  - Osteoporosis [Unknown]
  - Bone disorder [Unknown]
  - Multiple fractures [Unknown]
  - Osteopenia [Unknown]
  - Back pain [Unknown]
  - Nasopharyngitis [Unknown]
  - Influenza [Unknown]
  - Dysuria [Unknown]
  - Arthritis [Unknown]
  - Calcium deficiency [Unknown]
  - Vitamin D deficiency [Unknown]
  - Arthralgia [Unknown]
  - Depression [Unknown]
